FAERS Safety Report 6764997-7 (Version None)
Quarter: 2010Q2

REPORT INFORMATION
  Report Type: 
  Country: None (occurrence: None)
  Receive Date: 20100609
  Receipt Date: 20100503
  Transmission Date: 20101027
  Serious: No
  Sender: FDA-Public Use
  Company Number: 2010011062

PATIENT
  Age: 3 Year
  Weight: 19.0511 kg

DRUGS (1)
  1. CHILDREN'S ZYRTEC ALLERGY [Suspect]
     Indication: SEASONAL ALLERGY
     Dosage: 2.5 ML ONCE DAILY AT NIGHT ORAL
     Route: 048
     Dates: start: 20100101, end: 20100429

REACTIONS (2)
  - PRODUCT QUALITY ISSUE [None]
  - WRONG DRUG ADMINISTERED [None]
